FAERS Safety Report 19226408 (Version 4)
Quarter: 2021Q3

REPORT INFORMATION
  Report Type: Spontaneous
  Country: GB (occurrence: GB)
  Receive Date: 20210506
  Receipt Date: 20210728
  Transmission Date: 20211014
  Serious: Yes (Congenital Anomaly, Other)
  Sender: FDA-Public Use
  Company Number: GB-GILEAD-2021-0528313

PATIENT
  Sex: Female

DRUGS (2)
  1. GENVOYA [Suspect]
     Active Substance: COBICISTAT\ELVITEGRAVIR\EMTRICITABINE\TENOFOVIR ALAFENAMIDE FUMARATE
     Indication: RETROVIRAL INFECTION
     Dosage: 1 DOSAGE FORM
     Route: 064
     Dates: start: 20180501, end: 20190227
  2. DARUNAVIR [Suspect]
     Active Substance: DARUNAVIR
     Indication: RETROVIRAL INFECTION
     Dosage: 1 DOSAGE FORM
     Route: 064
     Dates: start: 20180501, end: 20190227

REACTIONS (2)
  - Renal fusion anomaly [Not Recovered/Not Resolved]
  - Foetal exposure during pregnancy [Recovered/Resolved]

NARRATIVE: CASE EVENT DATE: 20180501
